FAERS Safety Report 10963500 (Version 1)
Quarter: 2015Q1

REPORT INFORMATION
  Report Type: Spontaneous
  Country: US (occurrence: None)
  Receive Date: 20150327
  Receipt Date: 20150327
  Transmission Date: 20150721
  Serious: Yes (Hospitalization)
  Sender: FDA-Public Use
  Company Number: None

PATIENT
  Age: 69 Year
  Sex: Male
  Weight: 106.3 kg

DRUGS (1)
  1. LITHIUM [Suspect]
     Active Substance: LITHIUM CARBONATE
     Indication: BIPOLAR I DISORDER
     Dosage: 300 MG UD PO
     Route: 048
     Dates: start: 20130308, end: 20141227

REACTIONS (6)
  - Hypoglycaemia [None]
  - Acute kidney injury [None]
  - Antipsychotic drug level above therapeutic [None]
  - Depressed level of consciousness [None]
  - Metabolic acidosis [None]
  - Anaemia macrocytic [None]

NARRATIVE: CASE EVENT DATE: 20141226
